FAERS Safety Report 12718318 (Version 1)
Quarter: 2016Q3

REPORT INFORMATION
  Report Type: Report from Study
  Country: EG (occurrence: EG)
  Receive Date: 20160906
  Receipt Date: 20160906
  Transmission Date: 20161109
  Serious: Yes (Other)
  Sender: FDA-Public Use
  Company Number: EG-ABBVIE-16P-048-1719680-00

PATIENT
  Age: 62 Year
  Sex: Male

DRUGS (1)
  1. QUREVO [Suspect]
     Active Substance: OMBITASVIR\PARITAPREVIR\RITONAVIR
     Indication: HEPATITIS C
     Dosage: TWO TABLETS PER DAY
     Route: 048
     Dates: start: 20160405, end: 20160418

REACTIONS (4)
  - Peripheral swelling [Unknown]
  - Vomiting [Unknown]
  - Appetite disorder [Unknown]
  - Renal impairment [Unknown]

NARRATIVE: CASE EVENT DATE: 20160418
